FAERS Safety Report 14280782 (Version 1)
Quarter: 2017Q4

REPORT INFORMATION
  Report Type: Spontaneous
  Country: US (occurrence: US)
  Receive Date: 20171212
  Receipt Date: 20171212
  Transmission Date: 20180321
  Serious: Yes (Other)
  Sender: FDA-Public Use
  Company Number: None

PATIENT
  Age: 39 Year
  Sex: Male
  Weight: 88.65 kg

DRUGS (2)
  1. RANDOM [Concomitant]
  2. TIZANIDINE. [Suspect]
     Active Substance: TIZANIDINE
     Indication: MUSCLE RELAXANT THERAPY
     Dosage: ?          QUANTITY:1 TABLET(S); AS NEEDED ORAL?
     Route: 048
     Dates: start: 20101210, end: 20171211

REACTIONS (2)
  - Apparent death [None]
  - Pneumothorax [None]

NARRATIVE: CASE EVENT DATE: 20171211
